FAERS Safety Report 6634854-5 (Version None)
Quarter: 2010Q1

REPORT INFORMATION
  Report Type: 
  Country: None (occurrence: None)
  Receive Date: 20100315
  Receipt Date: 20100305
  Transmission Date: 20100710
  Serious: Yes (Hospitalization)
  Sender: FDA-Public Use
  Company Number: PL-ABBOTT-10P-129-0619928-01

PATIENT
  Sex: Male
  Weight: 74 kg

DRUGS (19)
  1. HUMIRA [Suspect]
     Indication: RHEUMATOID ARTHRITIS
     Route: 058
     Dates: start: 20080723
  2. METHOTREXATE [Suspect]
     Indication: RHEUMATOID ARTHRITIS
     Route: 048
     Dates: start: 20080723
  3. ACIDUM FOLICUM [Concomitant]
     Indication: PROPHYLAXIS
     Dates: start: 20080725
  4. ACIDUM FOLICUM [Concomitant]
     Indication: ADVERSE EVENT
  5. ENCORTON [Concomitant]
     Indication: RHEUMATOID ARTHRITIS
     Dates: start: 20080617, end: 20090415
  6. ENCORTON [Concomitant]
     Dates: start: 20090518
  7. TRAMAL [Concomitant]
     Indication: ANALGESIC THERAPY
     Dates: start: 20080617, end: 20090415
  8. TRAMAL [Concomitant]
     Indication: PAIN
     Dates: start: 20080617
  9. TRAMAL [Concomitant]
     Dates: start: 20090605
  10. TRAMAL [Concomitant]
     Dates: start: 20090518, end: 20090601
  11. OMEPRAZOLE [Concomitant]
     Indication: GASTRITIS PROPHYLAXIS
     Dates: start: 20080617, end: 20090601
  12. OMEPRAZOLE [Concomitant]
     Dates: start: 20090602
  13. ACAROL [Concomitant]
     Indication: ARTERIOSCLEROSIS
     Dates: start: 20080617
  14. VITRUM CALCIUM + VIT D3 [Concomitant]
     Indication: OSTEOPOROSIS PROPHYLAXIS
     Dates: start: 20090605
  15. TICLOPIDINE HCL [Concomitant]
     Indication: ARTERIOSCLEROSIS
     Dates: start: 20090605
  16. SALOFALK [Concomitant]
     Indication: COLITIS ULCERATIVE
     Route: 054
     Dates: start: 20100120
  17. KALDYUM [Concomitant]
     Indication: HYPOKALAEMIA
     Dates: start: 20100120
  18. ACARD [Concomitant]
     Indication: ARTERIOSCLEROSIS
     Dates: start: 20080617, end: 20090517
  19. ACARD [Concomitant]
     Dates: start: 20080617

REACTIONS (1)
  - COLITIS ULCERATIVE [None]
